FAERS Safety Report 4991497-7 (Version None)
Quarter: 2006Q2

REPORT INFORMATION
  Report Type: 
  Country: None (occurrence: None)
  Receive Date: 20060502
  Receipt Date: 20060419
  Transmission Date: 20061013
  Serious: Yes (Hospitalization)
  Sender: FDA-Public Use
  Company Number: 2006BH008411

PATIENT
  Age: 70 Year
  Sex: Male

DRUGS (2)
  1. KETOROLAC TROMETHAMINE [Suspect]
  2. IBUPROFEN [Suspect]
     Indication: ARTHRALGIA

REACTIONS (1)
  - MENINGITIS ASEPTIC [None]
